FAERS Safety Report 16631237 (Version 2)
Quarter: 2019Q4

REPORT INFORMATION
  Report Type: Spontaneous
  Country: US (occurrence: US)
  Receive Date: 20190725
  Receipt Date: 20191220
  Transmission Date: 20200122
  Serious: Yes (Hospitalization)
  Sender: FDA-Public Use
  Company Number: US-ORPHAN EUROPE-2071294

PATIENT
  Age: 12 Month
  Sex: Male

DRUGS (1)
  1. CARBAGLU [Suspect]
     Active Substance: CARGLUMIC ACID
     Indication: HYPERGLYCINAEMIA
     Dates: start: 20180207

REACTIONS (4)
  - Off label use [Not Recovered/Not Resolved]
  - Acidosis [Unknown]
  - Acute respiratory failure [Unknown]
  - Hyperglycinaemia [Unknown]
